FAERS Safety Report 9570041 (Version 1)
Quarter: 2013Q3

REPORT INFORMATION
  Report Type: Spontaneous
  Country: US (occurrence: None)
  Receive Date: 20130926
  Receipt Date: 20130926
  Transmission Date: 20140515
  Serious: No
  Sender: FDA-Public Use
  Company Number: None

PATIENT
  Age: 52 Year
  Sex: Female
  Weight: 59.88 kg

DRUGS (2)
  1. METFORMIN [Suspect]
     Dosage: 1 PILL ONCE DAILY TAKEN BY MOUTH
     Route: 048
     Dates: start: 20130322, end: 20130408
  2. LASIX [Suspect]
     Indication: SWELLING
     Dosage: 1 PILL, ONCE DAILY, TAKEN BY MOUTH
     Route: 048
     Dates: start: 20130524, end: 20130531

REACTIONS (6)
  - Vomiting [None]
  - Myalgia [None]
  - Blood glucose increased [None]
  - Job dissatisfaction [None]
  - Acidosis [None]
  - Impaired driving ability [None]
